FAERS Safety Report 20841629 (Version 1)
Quarter: 2022Q2

REPORT INFORMATION
  Report Type: Spontaneous
  Country: US (occurrence: US)
  Receive Date: 20220518
  Receipt Date: 20220518
  Transmission Date: 20220721
  Serious: Yes (Other)
  Sender: FDA-Public Use
  Company Number: US-STRIDES ARCOLAB LIMITED-2022SP002531

PATIENT
  Age: 15 Year
  Sex: Male

DRUGS (5)
  1. DIAZEPAM [Suspect]
     Active Substance: DIAZEPAM
     Indication: Genital pain
     Dosage: UNK
     Route: 065
  2. DIAZEPAM [Suspect]
     Active Substance: DIAZEPAM
     Indication: Urinary tract disorder
     Dosage: UNK, DIAZEPAM (VALIUM)
     Route: 054
  3. MELOXICAM [Suspect]
     Active Substance: MELOXICAM
     Indication: Genital pain
     Dosage: UNK
     Route: 065
  4. GABAPENTIN [Suspect]
     Active Substance: GABAPENTIN
     Indication: Genital pain
     Dosage: UNK
     Route: 065
  5. CELECOXIB [Suspect]
     Active Substance: CELECOXIB
     Indication: Genital pain
     Dosage: UNK
     Route: 065

REACTIONS (1)
  - Drug ineffective for unapproved indication [Unknown]
